FAERS Safety Report 23759126 (Version 1)
Quarter: 2024Q2

REPORT INFORMATION
  Report Type: Spontaneous
  Country: US (occurrence: None)
  Receive Date: 20240418
  Receipt Date: 20240418
  Transmission Date: 20240715
  Serious: No
  Sender: FDA-Public Use
  Company Number: US-ROCHE-3484582

PATIENT
  Age: 82 Year
  Sex: Male
  Weight: 61.2 kg

DRUGS (15)
  1. ESBRIET [Suspect]
     Active Substance: PIRFENIDONE
     Indication: Product used for unknown indication
     Route: 065
  2. ESBRIET [Suspect]
     Active Substance: PIRFENIDONE
     Dosage: 267 MG, 3 TIMES DAILY THEN TAKE 534 MG, 3 TIMES DAILY IN SECOND WEEK AND THEN 801 MG, 3 TIMES DAY IN
     Route: 065
     Dates: start: 20231122, end: 20231229
  3. TYVASO [Suspect]
     Active Substance: TREPROSTINIL
     Indication: Pulmonary arterial hypertension
     Dosage: 0.6 MG/ML
     Route: 055
     Dates: start: 20231122
  4. HYZAAR [Concomitant]
     Active Substance: HYDROCHLOROTHIAZIDE\LOSARTAN POTASSIUM
  5. NEURIVA BRAIN PERFORMANCE PLUS [Concomitant]
  6. XARELTO [Concomitant]
     Active Substance: RIVAROXABAN
  7. PANTOPRAZOLE SODIUM [Concomitant]
     Active Substance: PANTOPRAZOLE SODIUM
  8. ALBUTEROL SULFATE [Concomitant]
     Active Substance: ALBUTEROL SULFATE
  9. ROSUVASTATIN CALCIUM [Concomitant]
     Active Substance: ROSUVASTATIN CALCIUM
  10. MAGNESIUM [Concomitant]
     Active Substance: MAGNESIUM
  11. NITROGLYCERIN [Concomitant]
     Active Substance: NITROGLYCERIN
  12. PROBIOTICS NOS [Concomitant]
     Active Substance: PROBIOTICS NOS
  13. ACETAMINOPHEN [Concomitant]
     Active Substance: ACETAMINOPHEN
  14. CARVEDILOL [Concomitant]
     Active Substance: CARVEDILOL
  15. LOSARTAN [Concomitant]
     Active Substance: LOSARTAN

REACTIONS (8)
  - Abdominal discomfort [Unknown]
  - Cough [Unknown]
  - Blood pressure fluctuation [Unknown]
  - Diarrhoea [Recovered/Resolved]
  - Blood pressure decreased [Recovered/Resolved]
  - Insomnia [Unknown]
  - Ill-defined disorder [Unknown]
  - Visual acuity reduced [Unknown]
